FAERS Safety Report 6822622-0 (Version None)
Quarter: 2010Q3

REPORT INFORMATION
  Report Type: 
  Country: None (occurrence: None)
  Receive Date: 20100708
  Receipt Date: 20100625
  Transmission Date: 20110219
  Serious: Yes (Other)
  Sender: FDA-Public Use
  Company Number: GT-SANOFI-AVENTIS-2010SA038511

PATIENT
  Age: 22 Year
  Sex: Female

DRUGS (3)
  1. LEFLUNOMIDE [Suspect]
     Indication: ARTHRITIS
     Dates: start: 20090101, end: 20100621
  2. METHOTREXATE [Suspect]
     Indication: ARTHRITIS
     Route: 048
     Dates: start: 20060601, end: 20100610
  3. METICORTEN [Suspect]
     Indication: ARTHRITIS
     Route: 048
     Dates: start: 20060101, end: 20100625

REACTIONS (2)
  - ABORTION SPONTANEOUS [None]
  - DRUG EXPOSURE BEFORE PREGNANCY [None]
